FAERS Safety Report 5615607-3 (Version None)
Quarter: 2008Q1

REPORT INFORMATION
  Report Type: 
  Country: None (occurrence: None)
  Receive Date: 20080205
  Receipt Date: 20080205
  Transmission Date: 20080703
  Serious: Yes (Life-Threatening)
  Sender: FDA-Public Use
  Company Number: None

PATIENT
  Sex: Male
  Weight: 66 kg

DRUGS (1)
  1. HEPARIN [Suspect]
     Indication: CORONARY ARTERY BYPASS
     Dosage: 1000 X1 IV BOLUS; SEVERAL MINUTES; 13000 X1 IV BOLUS
     Route: 040

REACTIONS (1)
  - BLOOD PRESSURE DECREASED [None]
